FAERS Safety Report 16693723 (Version 1)
Quarter: 2019Q3

REPORT INFORMATION
  Report Type: Spontaneous
  Country: US (occurrence: US)
  Receive Date: 20190812
  Receipt Date: 20190812
  Transmission Date: 20191004
  Serious: No
  Sender: FDA-Public Use
  Company Number: US-AMNEAL PHARMACEUTICALS-2019AMN00270

PATIENT
  Sex: Female

DRUGS (1)
  1. SPIRONOLACTONE. [Suspect]
     Active Substance: SPIRONOLACTONE
     Indication: ACNE
     Dosage: UNK
     Route: 065
     Dates: start: 2018

REACTIONS (3)
  - Product use in unapproved indication [Unknown]
  - Product substitution issue [Unknown]
  - Alopecia [Unknown]

NARRATIVE: CASE EVENT DATE: 2018
